FAERS Safety Report 5137965-9 (Version None)
Quarter: 2006Q4

REPORT INFORMATION
  Report Type: 
  Country: None (occurrence: None)
  Receive Date: 20061030
  Receipt Date: 20060324
  Transmission Date: 20070319
  Serious: No
  Sender: FDA-Public Use
  Company Number: US-GLAXOSMITHKLINE-A0598954A

PATIENT
  Age: 69 Year
  Sex: Female

DRUGS (9)
  1. ADVAIR HFA [Suspect]
     Indication: CHRONIC OBSTRUCTIVE PULMONARY DISEASE
     Dosage: 1PUFF TWICE PER DAY
     Route: 055
     Dates: start: 20060323
  2. PLAVIX [Concomitant]
  3. VEROLIN [Concomitant]
  4. IMDUR [Concomitant]
  5. ZOLOFT [Concomitant]
  6. HYTRIN [Concomitant]
  7. SYNTHROID [Concomitant]
  8. VALIUM [Concomitant]
  9. ASPIRIN [Concomitant]

REACTIONS (1)
  - DIZZINESS [None]
